FAERS Safety Report 10031175 (Version 2)
Quarter: 2014Q1

REPORT INFORMATION
  Report Type: Spontaneous
  Country: ZA (occurrence: ZA)
  Receive Date: 20140324
  Receipt Date: 20140324
  Transmission Date: 20141002
  Serious: Yes (Disabling)
  Sender: FDA-Public Use
  Company Number: ZA-009507513-1403ZAF002473

PATIENT
  Age: 68 Year
  Sex: Male
  Weight: 87 kg

DRUGS (2)
  1. INTRONA [Suspect]
     Indication: MALIGNANT MELANOMA
     Dosage: 30 IV X 4 WEEKS THEN SC 10 INJECTIONS X 3WEEKS
     Route: 042
     Dates: start: 201208, end: 201303
  2. INTRONA [Suspect]
     Dosage: 30 IV X 4 WEEKS THEN SC 10 INJECTIONS X 3WEEKS
     Route: 058
     Dates: start: 201208, end: 201303

REACTIONS (2)
  - Liver sarcoidosis [Not Recovered/Not Resolved]
  - Liver function test abnormal [Not Recovered/Not Resolved]
